FAERS Safety Report 10047531 (Version 1)
Quarter: 2014Q1

REPORT INFORMATION
  Report Type: Spontaneous
  Country: US (occurrence: US)
  Receive Date: 20140331
  Receipt Date: 20140331
  Transmission Date: 20141002
  Serious: Yes (Other)
  Sender: FDA-Public Use
  Company Number: US-BAYER-2014-044426

PATIENT
  Age: 42 Year
  Sex: Male

DRUGS (2)
  1. CIPROFLOXACIN [Suspect]
     Indication: OSTEOMYELITIS
     Dosage: 500 MG, BID, FOR 14 DAYS
     Route: 048
  2. INFLIXIMAB [Concomitant]
     Indication: CROHN^S DISEASE
     Dosage: 5 MG/KG EVERY 8 WEEKS

REACTIONS (2)
  - Rectal abscess [None]
  - Drug ineffective [None]
